FAERS Safety Report 7378886-0 (Version None)
Quarter: 2011Q1

REPORT INFORMATION
  Report Type: 
  Country: None (occurrence: None)
  Receive Date: 20110328
  Receipt Date: 20110323
  Transmission Date: 20110831
  Serious: Yes (Death, Hospitalization, Other)
  Sender: FDA-Public Use
  Company Number: PHHY2011CA22125

PATIENT
  Sex: Female

DRUGS (5)
  1. CORTICOSTEROIDS [Concomitant]
     Indication: RHEUMATOID ARTHRITIS
  2. ACLASTA [Suspect]
     Indication: OSTEOPOROSIS
     Dosage: 5 MG, UNK
     Route: 042
     Dates: start: 20100408
  3. HEPARIN SODIUM [Suspect]
  4. ERTAPENEM [Suspect]
  5. INSULIN [Concomitant]
     Indication: TYPE 2 DIABETES MELLITUS

REACTIONS (7)
  - HYPERTHERMIA [None]
  - PULMONARY EMBOLISM [None]
  - COLON CANCER METASTATIC [None]
  - NEUTROPENIA [None]
  - ANASTOMOTIC LEAK [None]
  - THROMBOCYTOPENIA [None]
  - LEUKOPENIA [None]
